FAERS Safety Report 19715315 (Version 1)
Quarter: 2021Q3

REPORT INFORMATION
  Report Type: Spontaneous
  Country: IN (occurrence: IN)
  Receive Date: 20210818
  Receipt Date: 20210818
  Transmission Date: 20211014
  Serious: Yes (Death, Other)
  Sender: FDA-Public Use
  Company Number: IN-PFIZER INC-2017037065

PATIENT
  Age: 66 Year
  Sex: Female

DRUGS (16)
  1. PALBACE [Suspect]
     Active Substance: PALBOCICLIB
     Dosage: 125 UNK
     Route: 048
     Dates: start: 20161217
  2. VIT D [Concomitant]
     Active Substance: VITAMIN D NOS
     Dosage: UNK
     Route: 042
  3. LEVOFLOX [Concomitant]
     Active Substance: LEVOFLOXACIN
     Dosage: UNK, 1X/DAY (500 X7 DAY)
  4. BIOTIN [Concomitant]
     Active Substance: BIOTIN
     Dosage: UNK, 2X/DAY
  5. FULVESTRANT. [Concomitant]
     Active Substance: FULVESTRANT
     Dosage: UNK
  6. PALBACE [Suspect]
     Active Substance: PALBOCICLIB
     Indication: BREAST CANCER METASTATIC
     Dosage: 125 MG, 1X/DAY
     Route: 048
     Dates: start: 20161215
  7. LETROZOLE. [Concomitant]
     Active Substance: LETROZOLE
     Dosage: 2.5 MG, 1X/DAY
  8. CITRACAL + D [Concomitant]
     Active Substance: CALCIUM CITRATE\VITAMIN D
     Dosage: UNK, 3X/DAY (X 1W)
  9. ZOLEDRONIC ACID [Concomitant]
     Active Substance: ZOLEDRONIC ACID
     Dosage: UNK
     Route: 042
  10. VITAMIN B12 [Concomitant]
     Active Substance: CYANOCOBALAMIN
     Dosage: UNK
     Route: 042
  11. AROMASIN [Concomitant]
     Active Substance: EXEMESTANE
     Dosage: UNK
  12. LETROZOLE. [Concomitant]
     Active Substance: LETROZOLE
     Dosage: 2.5 MG, MONTHLY
     Route: 048
  13. STEMETIL [Concomitant]
     Active Substance: PROCHLORPERAZINE
     Dosage: UNK, 3X/DAY (5; X100)
  14. NIFTRAN [Concomitant]
     Dosage: UNK, 2X/DAY (100 X2 W)
  15. GLUCOMAG [Concomitant]
     Dosage: UNK, 3X/DAY (X 1W)
  16. SHELCAL [Concomitant]
     Active Substance: CALCIUM CARBONATE\CHOLECALCIFEROL
     Dosage: UNK

REACTIONS (23)
  - Nervous system disorder [Fatal]
  - Hepatomegaly [Recovering/Resolving]
  - Red blood cells urine positive [Recovering/Resolving]
  - Red cell distribution width increased [Recovering/Resolving]
  - Peripheral swelling [Recovering/Resolving]
  - Haematocrit decreased [Recovering/Resolving]
  - Lymphocyte percentage increased [Recovering/Resolving]
  - Mean platelet volume decreased [Recovering/Resolving]
  - Red blood cell count decreased [Recovering/Resolving]
  - Cough [Unknown]
  - Gait inability [Fatal]
  - Hiatus hernia [Recovering/Resolving]
  - Mean cell haemoglobin increased [Recovering/Resolving]
  - Pyrexia [Recovering/Resolving]
  - Leukopenia [Recovering/Resolving]
  - Dyspnoea [Fatal]
  - Pneumonia [Fatal]
  - Diabetes mellitus [Fatal]
  - Pain [Recovering/Resolving]
  - Dizziness [Recovering/Resolving]
  - Neoplasm progression [Recovering/Resolving]
  - Haemoglobin decreased [Recovering/Resolving]
  - Pyuria [Recovering/Resolving]

NARRATIVE: CASE EVENT DATE: 20170323
